FAERS Safety Report 23995808 (Version 1)
Quarter: 2024Q2

REPORT INFORMATION
  Report Type: Spontaneous
  Country: US (occurrence: US)
  Receive Date: 20240620
  Receipt Date: 20240620
  Transmission Date: 20240717
  Serious: No
  Sender: FDA-Public Use
  Company Number: US-FreseniusKabi-FK202409158

PATIENT

DRUGS (1)
  1. ADALIMUMAB-AACF [Suspect]
     Active Substance: ADALIMUMAB\ADALIMUMAB-AACF\ISOPROPYL ALCOHOL
     Indication: Product used for unknown indication
     Dosage: FORM OF ADMIN: PEN INJECTION

REACTIONS (5)
  - Injection site reaction [Unknown]
  - Accidental exposure to product [Unknown]
  - Incorrect dose administered by device [Unknown]
  - Inappropriate schedule of product administration [Unknown]
  - Impaired healing [Unknown]
